FAERS Safety Report 25345083 (Version 1)
Quarter: 2025Q2

REPORT INFORMATION
  Report Type: Spontaneous
  Country: US (occurrence: US)
  Receive Date: 20250522
  Receipt Date: 20250522
  Transmission Date: 20250716
  Serious: Yes (Other)
  Sender: ADC THERAPEUTICS
  Company Number: US-ADC THERAPEUTICS SA-ADC-2025-000123

PATIENT
  Age: 32 Year
  Sex: Male

DRUGS (3)
  1. ZYNLONTA [Suspect]
     Active Substance: LONCASTUXIMAB TESIRINE-LPYL
     Indication: Diffuse large B-cell lymphoma
     Dosage: 0.15 MILLIGRAM/KILOGRAM, Q3WK
     Route: 042
     Dates: start: 20241120, end: 20241120
  2. ZYNLONTA [Suspect]
     Active Substance: LONCASTUXIMAB TESIRINE-LPYL
     Dosage: 0.075 MILLIGRAM/KILOGRAM, Q3WK
     Dates: start: 20250108, end: 20250108
  3. ZYNLONTA [Suspect]
     Active Substance: LONCASTUXIMAB TESIRINE-LPYL
     Dosage: 0.037 MILLIGRAM/KILOGRAM, Q3WK
     Dates: start: 20250312, end: 20250312

REACTIONS (2)
  - Hepatotoxicity [Recovered/Resolved]
  - Thrombocytopenia [Unknown]
